FAERS Safety Report 10457532 (Version 6)
Quarter: 2014Q4

REPORT INFORMATION
  Report Type: Report from Study
  Country: CA (occurrence: CA)
  Receive Date: 20140916
  Receipt Date: 20141009
  Transmission Date: 20150528
  Serious: Yes (Hospitalization)
  Sender: FDA-Public Use
  Company Number: CA-MERCK-1408CAN012739

PATIENT
  Age: 64 Year
  Sex: Female
  Weight: 49.1 kg

DRUGS (11)
  1. PEMBROLIZUMAB. [Suspect]
     Active Substance: PEMBROLIZUMAB
     Dosage: 10 MG/KG, QOW, DOSE REPORTED: 280 (UNIT NOT PROVIDED)
     Route: 042
     Dates: start: 20140626, end: 20140626
  2. ENTOCORT [Concomitant]
     Active Substance: BUDESONIDE
     Indication: DIARRHOEA
     Dosage: 3 MG, QD, FORMULATION: PILL
     Route: 048
     Dates: start: 20140314
  3. PEMBROLIZUMAB. [Suspect]
     Active Substance: PEMBROLIZUMAB
     Dosage: 10 MG/KG, QOW, DOSE REPORTED: 250 (UNIT NOT PROVIDED)
     Route: 042
     Dates: start: 20140918, end: 20140918
  4. TOLOXIN (DIGOXIN) [Concomitant]
     Indication: TACHYCARDIA
     Dosage: 0.13 MG, QD, FORMULATION: PILL
     Route: 048
     Dates: start: 20130717
  5. CALTRATE (CALCIUM CARBONATE (+) CHOLECALCIFEROL) [Concomitant]
     Indication: ROUTINE HEALTH MAINTENANCE
     Dosage: 600 MG, BID
     Route: 048
     Dates: start: 201101
  6. IMODIUM [Concomitant]
     Active Substance: LOPERAMIDE HYDROCHLORIDE
     Indication: DIARRHOEA
     Dosage: PRN, TOTAL DAILY DOSE OF  2 MG
     Route: 048
     Dates: start: 20140403
  7. STEMETIL (PROCHLORPERAZINE MALEATE) [Concomitant]
     Indication: NAUSEA
     Dosage: TOTAL DAILY DOSE 10 MG, PRN
     Route: 048
     Dates: start: 20140403
  8. BENADRYL [Concomitant]
     Active Substance: DIPHENHYDRAMINE HYDROCHLORIDE
     Indication: PROPHYLAXIS
     Dosage: TOTAL DAILY DOSE 50 MG, OTHER, FORMULATION: PILL
     Route: 048
     Dates: start: 20140512
  9. CLONAZEPAM. [Suspect]
     Active Substance: CLONAZEPAM
     Indication: ANXIETY
     Dosage: 0.5 MG, BID
     Route: 048
     Dates: start: 201101, end: 20140819
  10. PEMBROLIZUMAB. [Suspect]
     Active Substance: PEMBROLIZUMAB
     Indication: MALIGNANT MELANOMA
     Dosage: 10 MG/KG, QOW, DOSE REPORTED: 301 (UNIT NOT PROVIDED)
     Route: 042
     Dates: start: 20140221, end: 20140612
  11. DOVONEX [Concomitant]
     Active Substance: CALCIPOTRIENE
     Indication: PSORIASIS
     Dosage: DAILY DOSE 0.005%, BID
     Route: 061
     Dates: start: 201306

REACTIONS (4)
  - Diarrhoea [Recovered/Resolved]
  - Urinary retention [Recovered/Resolved]
  - Arthritis [Recovering/Resolving]
  - Intestinal obstruction [Recovered/Resolved]

NARRATIVE: CASE EVENT DATE: 20140701
